FAERS Safety Report 25402001 (Version 3)
Quarter: 2025Q3

REPORT INFORMATION
  Report Type: Spontaneous
  Country: US (occurrence: US)
  Receive Date: 20250605
  Receipt Date: 20250723
  Transmission Date: 20251020
  Serious: Yes (Hospitalization, Other)
  Sender: BRISTOL-MYERS SQUIBB COMPANY
  Company Number: US-BRISTOL-MYERS SQUIBB COMPANY-2025-079695

PATIENT
  Age: 81 Year
  Sex: Female
  Weight: 81.19 kg

DRUGS (3)
  1. ELIQUIS [Suspect]
     Active Substance: APIXABAN
     Indication: Atrial fibrillation
     Route: 048
     Dates: start: 20150101
  2. BENZOIC ACID\METHENAMINE\SODIUM SALICYLATE [Suspect]
     Active Substance: BENZOIC ACID\METHENAMINE\SODIUM SALICYLATE
     Indication: Dysuria
     Route: 048
     Dates: start: 20250529, end: 20250530
  3. IBUPROFEN [Concomitant]
     Active Substance: IBUPROFEN
     Indication: Fractured coccyx

REACTIONS (2)
  - Gastrointestinal ulcer haemorrhage [Recovering/Resolving]
  - Urinary tract infection [Unknown]

NARRATIVE: CASE EVENT DATE: 20250530
